FAERS Safety Report 19662472 (Version 1)
Quarter: 2021Q3

REPORT INFORMATION
  Report Type: Spontaneous
  Country: US (occurrence: US)
  Receive Date: 20210805
  Receipt Date: 20210805
  Transmission Date: 20211014
  Serious: No
  Sender: FDA-Public Use
  Company Number: US-JNJFOC-20210738399

PATIENT
  Age: 75 Year
  Sex: Female

DRUGS (2)
  1. TYLENOL [Suspect]
     Active Substance: ACETAMINOPHEN
     Indication: PRODUCT USED FOR UNKNOWN INDICATION
     Route: 065
  2. COVID?19 VACCINE [Concomitant]
     Indication: COVID-19
     Dosage: FIRST DOSE: 16/JUN/2021, SECOND DOSE: 07/JUL/2021
     Route: 065

REACTIONS (2)
  - Product administration error [Unknown]
  - Incorrect dose administered [Unknown]
